FAERS Safety Report 7807911-5 (Version None)
Quarter: 2011Q4

REPORT INFORMATION
  Report Type: 
  Country: None (occurrence: None)
  Receive Date: 20111011
  Receipt Date: 20111005
  Transmission Date: 20120403
  Serious: Yes (Death, Other)
  Sender: FDA-Public Use
  Company Number: US-AMGEN-QUU413544

PATIENT
  Age: 72 Year
  Sex: Male
  Weight: 71.3 kg

DRUGS (17)
  1. CORTICOSTEROID NOS [Concomitant]
     Dosage: UNK UNK, UNK
     Dates: start: 20091215
  2. DOCETAXEL [Concomitant]
     Dosage: 30 MG/M2, QWK
     Dates: start: 20090820
  3. ACETAMINOPHEN AND HYDROCODONE BITARTRATE [Concomitant]
     Dosage: UNK UNK, PRN
     Route: 048
  4. SIMVASTATIN [Concomitant]
     Dosage: 20 MG, QD
  5. UNSPECIFIED ANTIEMETIC [Concomitant]
  6. MIRALAX [Concomitant]
     Dosage: UNK UNK, QD
  7. GEMCITABINE HYDROCHLORIDE [Concomitant]
     Dosage: 800 MG/M2, QWK
     Dates: start: 20090212
  8. GLIPIZIDE [Concomitant]
     Dosage: 5 MG, BID
  9. STOOL SOFTENER [Concomitant]
     Dosage: UNK UNK, PRN
  10. IBUPROFEN [Concomitant]
     Dosage: UNK UNK, TID
  11. ACETAMINOPHEN [Concomitant]
  12. PREDNISONE [Concomitant]
     Dosage: 10 MG, QD
  13. INSULIN GLARGINE [Concomitant]
     Dosage: 10 IU, QD
  14. INSULIN LISPRO [Concomitant]
  15. NPLATE [Suspect]
     Indication: IDIOPATHIC THROMBOCYTOPENIC PURPURA
     Dosage: 110 MUG, UNK
     Dates: start: 20100223, end: 20100323
  16. MAGNESIUM HYDROXIDE [Concomitant]
  17. FISH OIL [Concomitant]
     Dosage: 1000 MG, QD

REACTIONS (6)
  - PANCREATIC CARCINOMA METASTATIC [None]
  - TELANGIECTASIA [None]
  - ASTHENIA [None]
  - ASCITES [None]
  - METASTASES TO LIVER [None]
  - OEDEMA PERIPHERAL [None]
